FAERS Safety Report 5294738-4 (Version None)
Quarter: 2007Q2

REPORT INFORMATION
  Report Type: 
  Country: None (occurrence: None)
  Receive Date: 20070406
  Receipt Date: 20070323
  Transmission Date: 20071010
  Serious: Yes (Other)
  Sender: FDA-Public Use
  Company Number: 2007RR-06609

PATIENT
  Age: 17 Day
  Sex: Male

DRUGS (2)
  1. FUROSEMIDE [Suspect]
  2. HYDROCORTISONE [Suspect]

REACTIONS (3)
  - HYPERCALCAEMIA [None]
  - NEONATAL DISORDER [None]
  - PREMATURE BABY [None]
